FAERS Safety Report 17773829 (Version 1)
Quarter: 2020Q2

REPORT INFORMATION
  Report Type: Spontaneous
  Country: FR (occurrence: FR)
  Receive Date: 20200513
  Receipt Date: 20200513
  Transmission Date: 20200714
  Serious: Yes (Hospitalization)
  Sender: FDA-Public Use
  Company Number: FR-SUN PHARMACEUTICAL INDUSTRIES LTD-2020RR-246786

PATIENT
  Age: 45 Year
  Sex: Female
  Weight: 63 kg

DRUGS (5)
  1. PERINDOPRIL [Suspect]
     Active Substance: PERINDOPRIL
     Indication: TOXICITY TO VARIOUS AGENTS
     Dosage: 472 MILLIGRAMS, IN TOTAL
     Route: 048
     Dates: start: 20200408, end: 20200408
  2. ROSUVASTATIN. [Suspect]
     Active Substance: ROSUVASTATIN
     Indication: TOXICITY TO VARIOUS AGENTS
     Dosage: 75 MILLIGRAMS, IN TOTAL
     Route: 048
     Dates: start: 20200408, end: 20200408
  3. BISOPROLOL [Suspect]
     Active Substance: BISOPROLOL
     Indication: TOXICITY TO VARIOUS AGENTS
     Dosage: 410 MILLIGRAMS, IN TOTAL
     Route: 048
     Dates: start: 20200408, end: 20200408
  4. KARDEGIC [Suspect]
     Active Substance: ASPIRIN DL-LYSINE
     Indication: TOXICITY TO VARIOUS AGENTS
     Dosage: INCONNUE
     Route: 048
     Dates: start: 20200408, end: 20200408
  5. CODOLIPRANE 500 MG/30 MG, COMPRIME [Suspect]
     Active Substance: ACETAMINOPHEN\CODEINE PHOSPHATE
     Indication: TOXICITY TO VARIOUS AGENTS
     Dosage: 24 DOSAGE FORMS, IN TOTAL
     Route: 048
     Dates: start: 20200408, end: 20200408

REACTIONS (3)
  - Metabolic acidosis [Recovered/Resolved]
  - Hypotension [Recovered/Resolved]
  - Vomiting [Recovered/Resolved]

NARRATIVE: CASE EVENT DATE: 20200408
